FAERS Safety Report 19410322 (Version 1)
Quarter: 2021Q2

REPORT INFORMATION
  Report Type: Report from Study
  Country: US (occurrence: US)
  Receive Date: 20210614
  Receipt Date: 20210614
  Transmission Date: 20210717
  Serious: Yes (Hospitalization)
  Sender: FDA-Public Use
  Company Number: US-GILEAD-2021-0533978

PATIENT
  Age: 36 Year
  Sex: Female

DRUGS (33)
  1. BUPROPION HYDROCHLORIDE XL [Concomitant]
     Active Substance: BUPROPION HYDROCHLORIDE
  2. CITRACAL [CALCIUM CARBONATE;COLECALCIFEROL;VITAMIN K NOS] [Concomitant]
  3. VITAMIN D3 [Concomitant]
     Active Substance: CHOLECALCIFEROL
  4. PRAVASTATIN. [Concomitant]
     Active Substance: PRAVASTATIN
  5. PREDNISONE. [Concomitant]
     Active Substance: PREDNISONE
  6. URSODIOL. [Concomitant]
     Active Substance: URSODIOL
  7. BUSPIRONE [Concomitant]
     Active Substance: BUSPIRONE HYDROCHLORIDE
  8. LINZESS [Concomitant]
     Active Substance: LINACLOTIDE
  9. TACROLIMUS. [Concomitant]
     Active Substance: TACROLIMUS
  10. VALGANCICLOVIR. [Concomitant]
     Active Substance: VALGANCICLOVIR
  11. APAP/CODEINE [CODEINE;PARACETAMOL] [Concomitant]
     Active Substance: ACETAMINOPHEN\CODEINE PHOSPHATE
  12. BENADRYL ALLERGY [CETIRIZINE HYDROCHLORIDE] [Concomitant]
     Active Substance: CETIRIZINE HYDROCHLORIDE
  13. CREON [Concomitant]
     Active Substance: PANCRELIPASE AMYLASE\PANCRELIPASE LIPASE\PANCRELIPASE PROTEASE
  14. HUMULIN N [Concomitant]
     Active Substance: INSULIN HUMAN
  15. PEG 3350 + ELECTROLYTES [Concomitant]
  16. SMZ?TMP [Concomitant]
     Active Substance: SULFAMETHOXAZOLE\TRIMETHOPRIM
  17. VITAMIN E D ALPHA TOCOPHEROL [Concomitant]
  18. VITAMIN A + D [RETINOL;VITAMIN D NOS] [Concomitant]
  19. AMOXICILLIN. [Concomitant]
     Active Substance: AMOXICILLIN
  20. LEVOFLOXACIN. [Concomitant]
     Active Substance: LEVOFLOXACIN
  21. METOCLOPRAMIDE. [Concomitant]
     Active Substance: METOCLOPRAMIDE
  22. TOBRAMYCIN [TOBRAMYCIN SULFATE] [Concomitant]
     Active Substance: TOBRAMYCIN SULFATE
  23. GABAPENTIN. [Concomitant]
     Active Substance: GABAPENTIN
  24. HAIR SKIN NAILS [Concomitant]
  25. PANTOPRAZOLE [Concomitant]
     Active Substance: PANTOPRAZOLE
  26. AZTREONAM LYSINE [Suspect]
     Active Substance: AZTREONAM LYSINE
     Indication: CYSTIC FIBROSIS
     Dosage: 75 MG, TID, 28DAYS ON, 28 DAYS OFF
     Route: 055
     Dates: start: 20170315
  27. AQUADEKS [Concomitant]
     Active Substance: MINERALS\VITAMINS
  28. AZITHROMYCIN ANHYDROUS. [Concomitant]
     Active Substance: AZITHROMYCIN ANHYDROUS
  29. CLONAZEPAM. [Concomitant]
     Active Substance: CLONAZEPAM
  30. FEROSUL [Concomitant]
     Active Substance: FERROUS SULFATE
  31. MYCOPHENOLATE [Concomitant]
     Active Substance: MYCOPHENOLIC ACID
  32. ONDANSETRON [Concomitant]
     Active Substance: ONDANSETRON
  33. ZOLPIDEM [Concomitant]
     Active Substance: ZOLPIDEM TARTRATE

REACTIONS (2)
  - Vomiting [Not Recovered/Not Resolved]
  - Gastroenteritis viral [Unknown]

NARRATIVE: CASE EVENT DATE: 20210526
